FAERS Safety Report 9648099 (Version 1)
Quarter: 2013Q4

REPORT INFORMATION
  Report Type: Spontaneous
  Country: US (occurrence: US)
  Receive Date: 20131028
  Receipt Date: 20131028
  Transmission Date: 20140711
  Serious: Yes (Other)
  Sender: FDA-Public Use
  Company Number: US-JNJFOC-20131011998

PATIENT
  Age: 17 Year
  Sex: Female
  Weight: 58.97 kg

DRUGS (5)
  1. REMICADE [Suspect]
     Indication: SARCOIDOSIS
     Route: 042
     Dates: start: 201206
  2. VASOTEC [Concomitant]
     Indication: HYPERTENSION
     Route: 048
     Dates: start: 2013
  3. METHOTREXATE [Concomitant]
     Indication: SARCOIDOSIS
     Route: 058
     Dates: start: 2013
  4. PREDNISONE [Concomitant]
     Indication: SARCOIDOSIS
     Route: 048
     Dates: start: 201308
  5. NORVASC [Concomitant]
     Indication: HYPERTENSION
     Route: 048
     Dates: start: 20131011

REACTIONS (3)
  - Hypersensitivity [Unknown]
  - Infusion related reaction [Unknown]
  - Off label use [Unknown]
